FAERS Safety Report 11736902 (Version 12)
Quarter: 2016Q2

REPORT INFORMATION
  Report Type: Report from Study
  Country: KR (occurrence: KR)
  Receive Date: 20151113
  Receipt Date: 20160428
  Transmission Date: 20160815
  Serious: Yes (Hospitalization)
  Sender: FDA-Public Use
  Company Number: KR-ROCHE-1642981

PATIENT
  Age: 64 Year
  Sex: Female
  Weight: 51.6 kg

DRUGS (95)
  1. ELOCOM [Concomitant]
     Active Substance: MOMETASONE FUROATE
     Indication: PRURITUS
     Route: 061
     Dates: start: 20151208, end: 20151226
  2. MACPERAN [Concomitant]
     Active Substance: METOCLOPRAMIDE HYDROCHLORIDE
     Indication: NAUSEA
     Route: 042
     Dates: start: 20151204, end: 20151211
  3. TOPISOL (SOUTH KOREA) [Concomitant]
     Indication: PRURITUS
     Route: 061
     Dates: start: 20151208, end: 20151226
  4. MAGNESIUM SULFATE. [Concomitant]
     Active Substance: MAGNESIUM SULFATE
     Route: 042
     Dates: start: 20160111, end: 20160111
  5. TROPHERINE [Concomitant]
     Dosage: INDICATION- USED TO CHECK EYE
     Route: 047
     Dates: start: 20150921, end: 20150921
  6. TERRAMYCIN OPHTH [Concomitant]
     Indication: NASAL INFLAMMATION
     Route: 061
     Dates: start: 20160108, end: 20160125
  7. PROAMINE [Concomitant]
     Route: 042
     Dates: start: 20151201, end: 20151201
  8. PERAMIFLU [Concomitant]
     Active Substance: PERAMIVIR
     Indication: PROPHYLAXIS
     Route: 042
     Dates: start: 20160110, end: 20160112
  9. HUMULIN R [Concomitant]
     Active Substance: INSULIN HUMAN
     Route: 058
     Dates: start: 20160115, end: 20160115
  10. NEURONTIN (SOUTH KOREA) [Concomitant]
     Route: 048
     Dates: start: 20160109, end: 20160109
  11. MACPERAN [Concomitant]
     Active Substance: METOCLOPRAMIDE HYDROCHLORIDE
     Route: 048
     Dates: start: 20151201, end: 20151205
  12. VASELINE PURE [Concomitant]
     Active Substance: PETROLATUM
     Indication: RASH
     Route: 061
     Dates: start: 20151205, end: 20151226
  13. FUCIDINE CREAM [Concomitant]
     Indication: RASH
     Route: 061
     Dates: start: 20151205, end: 20151226
  14. TROPHERINE [Concomitant]
     Route: 047
     Dates: start: 20151019, end: 20151019
  15. TAMIFLU [Concomitant]
     Active Substance: OSELTAMIVIR PHOSPHATE
     Indication: PROPHYLAXIS
     Route: 048
     Dates: start: 20160108, end: 20160110
  16. PROAMINE [Concomitant]
     Indication: DECREASED APPETITE
     Route: 042
     Dates: start: 20160108, end: 20160108
  17. POTASSIUM CHLORIDE. [Concomitant]
     Active Substance: POTASSIUM CHLORIDE
     Indication: HYPOKALAEMIA
     Route: 042
     Dates: start: 20160110, end: 20160110
  18. HUMULIN R [Concomitant]
     Active Substance: INSULIN HUMAN
     Route: 058
     Dates: start: 20160116, end: 20160116
  19. FRESOFOL MCT [Concomitant]
     Indication: SUPPORTIVE CARE
     Route: 042
     Dates: start: 20160111, end: 20160112
  20. GASTER (SOUTH KOREA) [Concomitant]
     Indication: PROPHYLAXIS
     Route: 048
     Dates: start: 20151218, end: 20151218
  21. ALLEGRA [Concomitant]
     Active Substance: FEXOFENADINE HYDROCHLORIDE
     Indication: RASH
     Route: 048
     Dates: start: 20151215, end: 20151226
  22. MACPERAN [Concomitant]
     Active Substance: METOCLOPRAMIDE HYDROCHLORIDE
     Route: 048
     Dates: start: 20151119, end: 20151122
  23. RED BLOOD CELLS [Concomitant]
     Active Substance: HUMAN RED BLOOD CELL
     Indication: ANAEMIA
     Route: 065
     Dates: start: 20151205, end: 20151205
  24. MAGNESIUM SULFATE. [Concomitant]
     Active Substance: MAGNESIUM SULFATE
     Indication: HYPOMAGNESAEMIA
     Route: 042
     Dates: start: 20151008, end: 20151008
  25. TARGOCID [Concomitant]
     Active Substance: TEICOPLANIN
     Indication: PROPHYLAXIS
     Route: 067
     Dates: start: 20160110, end: 20160111
  26. PANTOLOC [Concomitant]
     Active Substance: PANTOPRAZOLE SODIUM
     Route: 048
     Dates: start: 20160122, end: 20160129
  27. HUMULIN R [Concomitant]
     Active Substance: INSULIN HUMAN
     Route: 058
     Dates: start: 20160114, end: 20160114
  28. HUMULIN R [Concomitant]
     Active Substance: INSULIN HUMAN
     Route: 058
     Dates: start: 20160116, end: 20160122
  29. EASYEF [Concomitant]
     Indication: RASH
     Route: 061
     Dates: start: 20160119, end: 20160120
  30. WINUF PERI [Concomitant]
     Indication: SUPPORTIVE CARE
     Route: 042
     Dates: start: 20160118, end: 20160120
  31. ELOCOM [Concomitant]
     Active Substance: MOMETASONE FUROATE
     Indication: RASH
     Route: 061
     Dates: start: 20151118, end: 20151124
  32. SODIUM BICARBONATE. [Concomitant]
     Active Substance: SODIUM BICARBONATE
     Indication: STOMATITIS
     Route: 050
     Dates: start: 20150916, end: 20160122
  33. PENIRAMIN [Concomitant]
     Dosage: 4 AND 12 MG
     Route: 042
     Dates: start: 20151218, end: 20151218
  34. CURAN [Concomitant]
     Active Substance: RANITIDINE HYDROCHLORIDE
     Indication: PREMEDICATION
     Route: 042
     Dates: start: 20150924, end: 20151230
  35. XYZAL [Concomitant]
     Active Substance: LEVOCETIRIZINE DIHYDROCHLORIDE
     Indication: PRURITUS
     Route: 048
     Dates: start: 20151206, end: 20151226
  36. EBASTEL [Concomitant]
     Active Substance: EBASTINE
     Indication: PRURITUS
     Route: 048
     Dates: start: 20151208, end: 20151226
  37. PHOSTEN [Concomitant]
     Indication: HYPOKALAEMIA
     Route: 042
     Dates: start: 20151210, end: 20151210
  38. TRAVOCORT [Concomitant]
     Indication: PRURITUS
     Route: 061
     Dates: start: 20151216, end: 20160226
  39. ARESTAL [Concomitant]
     Active Substance: LOPERAMIDE OXIDE
     Indication: DIARRHOEA
     Route: 048
     Dates: start: 20160108, end: 20160110
  40. NIMBEX (CISATRACURIUM BESILATE) [Concomitant]
     Indication: PROPHYLAXIS
     Route: 042
     Dates: start: 20160110, end: 20160111
  41. PANTOLOC [Concomitant]
     Active Substance: PANTOPRAZOLE SODIUM
     Indication: PROPHYLAXIS
     Route: 042
     Dates: start: 20160110, end: 20160120
  42. ALBUMIN [Concomitant]
     Active Substance: ALBUMIN HUMAN
     Route: 042
     Dates: start: 20160115, end: 20160115
  43. HUMULIN R [Concomitant]
     Active Substance: INSULIN HUMAN
     Route: 058
     Dates: start: 20160113, end: 20160113
  44. LASIX [Concomitant]
     Active Substance: FUROSEMIDE
     Indication: PROPHYLAXIS
     Route: 042
     Dates: start: 20160111, end: 20160112
  45. HEXAMEDINE [Concomitant]
     Indication: STOMATITIS
     Route: 050
     Dates: start: 20160111, end: 20160122
  46. ETOMIDATE. [Concomitant]
     Active Substance: ETOMIDATE
     Indication: BRONCHOSCOPY
     Route: 042
     Dates: start: 20160110, end: 20160110
  47. PACLITAXEL. [Suspect]
     Active Substance: PACLITAXEL
     Indication: BREAST CANCER METASTATIC
     Dosage: MOST RECENT DOSE PRIOR TO THE EVENTS WAS RECEIVED ON 02/OCT/2015 (120 MG), 25/NOV/2015 (95 MG) AND 3
     Route: 042
     Dates: start: 20150924
  48. DEXAMETHASONE. [Concomitant]
     Active Substance: DEXAMETHASONE
     Indication: STOMATITIS
     Route: 050
     Dates: start: 20151112, end: 20160128
  49. PENIRAMIN [Concomitant]
     Indication: PREMEDICATION
     Route: 042
     Dates: start: 20150924, end: 20151230
  50. PENIRAMIN [Concomitant]
     Indication: PRURITUS
     Route: 042
     Dates: start: 20151204, end: 20151204
  51. NEURONTIN (SOUTH KOREA) [Concomitant]
     Indication: PERIPHERAL SENSORY NEUROPATHY
     Route: 048
     Dates: start: 20151203, end: 20151210
  52. LIDOCAINE. [Concomitant]
     Active Substance: LIDOCAINE
     Indication: STOMATITIS
     Route: 050
     Dates: start: 20151112, end: 20160128
  53. AZEPTIN (SOUTH KOREA) [Concomitant]
     Indication: RASH
     Route: 048
     Dates: start: 20151118, end: 20151124
  54. TROPHERINE [Concomitant]
     Dosage: INDICATION- USED TO CHECK EYE
     Route: 047
     Dates: start: 20150919, end: 20150919
  55. MORPHINE HCL [Concomitant]
     Active Substance: MORPHINE HYDROCHLORIDE
     Indication: PROPHYLAXIS
     Route: 042
     Dates: start: 20160117, end: 20160122
  56. ULTIVA [Concomitant]
     Active Substance: REMIFENTANIL HYDROCHLORIDE
     Indication: PROPHYLAXIS
     Route: 042
     Dates: start: 20160110, end: 20160114
  57. TARGOCID [Concomitant]
     Active Substance: TEICOPLANIN
     Route: 042
     Dates: start: 20160112, end: 20160116
  58. ALBUMIN [Concomitant]
     Active Substance: ALBUMIN HUMAN
     Route: 042
     Dates: start: 20160112, end: 20160112
  59. SEROQUEL [Concomitant]
     Active Substance: QUETIAPINE FUMARATE
     Indication: PROPHYLAXIS
     Route: 030
     Dates: start: 20160111, end: 20160111
  60. HUMULIN R [Concomitant]
     Active Substance: INSULIN HUMAN
     Route: 058
     Dates: start: 20160113, end: 20160113
  61. HUMULIN R [Concomitant]
     Active Substance: INSULIN HUMAN
     Route: 058
     Dates: start: 20160115, end: 20160115
  62. WINUF PERI [Concomitant]
     Route: 042
     Dates: start: 20160116, end: 20160117
  63. VASOPRESSIN. [Concomitant]
     Active Substance: VASOPRESSIN
     Indication: PROPHYLAXIS
     Route: 042
     Dates: start: 20160111, end: 20160111
  64. BACTROBAN [Concomitant]
     Active Substance: MUPIROCIN\MUPIROCIN CALCIUM
     Indication: STOMATITIS
     Route: 061
     Dates: start: 20150916, end: 20160122
  65. BACTROBAN [Concomitant]
     Active Substance: MUPIROCIN\MUPIROCIN CALCIUM
     Route: 061
     Dates: start: 20160109, end: 20160109
  66. DEXAMETHASONE. [Concomitant]
     Active Substance: DEXAMETHASONE
     Indication: PREMEDICATION
     Route: 042
     Dates: start: 20150924, end: 20151230
  67. ACTIQ [Concomitant]
     Active Substance: FENTANYL CITRATE
     Indication: STOMATITIS
     Route: 061
     Dates: start: 20151112, end: 20160125
  68. TOPISOL (SOUTH KOREA) [Concomitant]
     Indication: RASH
     Route: 061
     Dates: start: 20151118, end: 20151124
  69. AZEPTIN (SOUTH KOREA) [Concomitant]
     Indication: PRURITUS
     Route: 048
     Dates: start: 20151208, end: 20151226
  70. PHOSTEN [Concomitant]
     Route: 042
     Dates: start: 20160112, end: 20160114
  71. TRAVOCORT [Concomitant]
     Indication: RASH
     Route: 061
     Dates: start: 20160120, end: 20160123
  72. MORPHINE HCL [Concomitant]
     Active Substance: MORPHINE HYDROCHLORIDE
     Indication: MYALGIA
     Route: 042
     Dates: start: 20151005, end: 20151019
  73. FENTANYL CITRATE. [Concomitant]
     Active Substance: FENTANYL CITRATE
     Indication: PROPHYLAXIS
     Route: 042
     Dates: start: 20160110, end: 20160112
  74. PHOSTEN [Concomitant]
     Route: 042
     Dates: start: 20160115, end: 20160115
  75. HUMULIN R [Concomitant]
     Active Substance: INSULIN HUMAN
     Indication: HYPERGLYCAEMIA
     Route: 042
     Dates: start: 20160111, end: 20160112
  76. BACTROBAN [Concomitant]
     Active Substance: MUPIROCIN\MUPIROCIN CALCIUM
     Indication: RASH
     Route: 061
     Dates: start: 20151115
  77. BACTROBAN [Concomitant]
     Active Substance: MUPIROCIN\MUPIROCIN CALCIUM
     Route: 061
     Dates: start: 20151118, end: 20151124
  78. ALLEGRA [Concomitant]
     Active Substance: FEXOFENADINE HYDROCHLORIDE
     Indication: PRURITUS
     Route: 048
     Dates: start: 20151218, end: 20151226
  79. STILNOX [Concomitant]
     Active Substance: ZOLPIDEM TARTRATE
     Indication: INSOMNIA
     Route: 048
     Dates: start: 20151007, end: 20160222
  80. ENAFON [Concomitant]
     Indication: HEADACHE
     Route: 048
     Dates: start: 20151215, end: 20151226
  81. MORPHINE HCL [Concomitant]
     Active Substance: MORPHINE HYDROCHLORIDE
     Route: 042
     Dates: start: 20160114, end: 20160114
  82. IRCODON [Concomitant]
     Indication: MYALGIA
     Route: 048
     Dates: start: 20160108, end: 20160109
  83. HEPARIN [Concomitant]
     Active Substance: HEPARIN SODIUM
     Indication: PROPHYLAXIS
     Route: 042
     Dates: start: 20160110, end: 20160111
  84. PHOSTEN [Concomitant]
     Indication: HYPOPHOSPHATAEMIA
     Route: 042
     Dates: start: 20160110, end: 20160110
  85. PHOSTEN [Concomitant]
     Route: 042
     Dates: start: 20160112, end: 20160114
  86. COBIMETINIB [Suspect]
     Active Substance: COBIMETINIB
     Indication: BREAST CANCER METASTATIC
     Dosage: MOST RECENT DOSE PRIOR TO THE EVENTS WAS RECEIVED ON 05/OCT/2015, 03/DEC/2015 AND 08/JAN/2016.
     Route: 048
     Dates: start: 20150926, end: 20151005
  87. PACLITAXEL. [Suspect]
     Active Substance: PACLITAXEL
     Route: 042
  88. PENIRAMIN [Concomitant]
     Route: 042
     Dates: start: 20151203, end: 20151203
  89. NEXIUM [Concomitant]
     Active Substance: ESOMEPRAZOLE MAGNESIUM
     Indication: DYSPEPSIA
     Route: 048
     Dates: start: 20151203, end: 20160128
  90. MIDAZOLAM [Concomitant]
     Active Substance: MIDAZOLAM\MIDAZOLAM HYDROCHLORIDE
     Indication: BRONCHOSCOPY
     Route: 042
     Dates: start: 20151209, end: 20151209
  91. PHOSTEN [Concomitant]
     Indication: HYPOPHOSPHATAEMIA
     Route: 042
     Dates: start: 20160110, end: 20160110
  92. TROPHERINE [Concomitant]
     Route: 047
     Dates: start: 20160108, end: 20160108
  93. LEVOPHED [Concomitant]
     Active Substance: NOREPINEPHRINE BITARTRATE
     Indication: PROPHYLAXIS
     Route: 042
     Dates: start: 20160110, end: 20160112
  94. MIDAZOLAM [Concomitant]
     Active Substance: MIDAZOLAM\MIDAZOLAM HYDROCHLORIDE
     Indication: BRONCHOSCOPY
     Route: 042
     Dates: start: 20160110, end: 20160110
  95. ALBUMIN [Concomitant]
     Active Substance: ALBUMIN HUMAN
     Indication: HYPOALBUMINAEMIA
     Route: 042
     Dates: start: 20160110, end: 20160110

REACTIONS (5)
  - Pneumonia [Recovered/Resolved]
  - Pneumonitis [Recovered/Resolved]
  - Ejection fraction decreased [Recovered/Resolved]
  - Febrile neutropenia [Recovered/Resolved]
  - Respiratory failure [Recovered/Resolved]

NARRATIVE: CASE EVENT DATE: 20151005
